FAERS Safety Report 5784089-3 (Version None)
Quarter: 2008Q2

REPORT INFORMATION
  Report Type: 
  Country: None (occurrence: None)
  Receive Date: 20080605
  Receipt Date: 20080423
  Transmission Date: 20081010
  Serious: No
  Sender: FDA-Public Use
  Company Number: A0718330A

PATIENT
  Age: 34 Year
  Sex: Female
  Weight: 167 kg

DRUGS (2)
  1. ALLI [Suspect]
     Route: 048
     Dates: start: 20080104
  2. VITAMIN [Concomitant]

REACTIONS (3)
  - CONSTIPATION [None]
  - PHARMACEUTICAL PRODUCT COMPLAINT [None]
  - WEIGHT INCREASED [None]
